FAERS Safety Report 18043885 (Version 1)
Quarter: 2020Q3

REPORT INFORMATION
  Report Type: Spontaneous
  Country: NL (occurrence: NL)
  Receive Date: 20200720
  Receipt Date: 20200720
  Transmission Date: 20201103
  Serious: Yes (Death, Other)
  Sender: FDA-Public Use
  Company Number: NL-AMGEN-NLDSP2020112755

PATIENT

DRUGS (2)
  1. XGEVA [Suspect]
     Active Substance: DENOSUMAB
     Indication: PROSTATE CANCER
  2. XGEVA [Suspect]
     Active Substance: DENOSUMAB
     Indication: BREAST CANCER
     Dosage: 120 MILLIGRAM, QMO
     Route: 058

REACTIONS (4)
  - Pathological fracture [Recovered/Resolved]
  - Osteonecrosis of jaw [Unknown]
  - Metastatic neoplasm [Fatal]
  - Peri-implantitis [Unknown]
